FAERS Safety Report 18540056 (Version 1)
Quarter: 2020Q4

REPORT INFORMATION
  Report Type: Spontaneous
  Country: US (occurrence: US)
  Receive Date: 20201124
  Receipt Date: 20201124
  Transmission Date: 20210114
  Serious: Yes (Other)
  Sender: FDA-Public Use
  Company Number: None

PATIENT
  Age: 85 Year
  Sex: Female
  Weight: 100.4 kg

DRUGS (1)
  1. REMDESIVIR. [Suspect]
     Active Substance: REMDESIVIR
     Indication: COVID-19
     Route: 042
     Dates: start: 20201123, end: 20201123

REACTIONS (5)
  - Dysarthria [None]
  - Anxiety [None]
  - Mental status changes [None]
  - Hallucinations, mixed [None]
  - Restlessness [None]

NARRATIVE: CASE EVENT DATE: 20201123
